FAERS Safety Report 10045820 (Version 1)
Quarter: 2014Q1

REPORT INFORMATION
  Report Type: Spontaneous
  Country: US (occurrence: US)
  Receive Date: 20140328
  Receipt Date: 20140328
  Transmission Date: 20141002
  Serious: No
  Sender: FDA-Public Use
  Company Number: US-009507513-1403USA013134

PATIENT
  Age: 61 Year
  Sex: Female
  Weight: 60 kg

DRUGS (6)
  1. REBETOL [Suspect]
     Indication: CHRONIC HEPATITIS C
     Dosage: UNK
  2. REBETOL [Suspect]
     Indication: HEPATIC CIRRHOSIS
  3. INTERFERON (UNSPECIFIED) [Suspect]
     Indication: CHRONIC HEPATITIS C
     Dosage: UNK
  4. INTERFERON (UNSPECIFIED) [Suspect]
     Indication: HEPATIC CIRRHOSIS
  5. TELAPREVIR [Suspect]
     Indication: CHRONIC HEPATITIS C
  6. TELAPREVIR [Suspect]
     Indication: HEPATIC CIRRHOSIS

REACTIONS (2)
  - Anaemia [Recovered/Resolved]
  - Hepatitis C [Unknown]
